FAERS Safety Report 22124616 (Version 4)
Quarter: 2023Q2

REPORT INFORMATION
  Report Type: Spontaneous
  Country: US (occurrence: US)
  Receive Date: 20230322
  Receipt Date: 20230516
  Transmission Date: 20230721
  Serious: No
  Sender: FDA-Public Use
  Company Number: US-PFIZER INC-202300107315

PATIENT
  Age: 17 Year
  Sex: Male
  Weight: 71 kg

DRUGS (1)
  1. GENOTROPIN [Suspect]
     Active Substance: SOMATROPIN
     Indication: Growth hormone deficiency
     Dosage: 3.2 MG, (6 DAYS A WEEK)
     Dates: start: 202303

REACTIONS (2)
  - Poor quality device used [Unknown]
  - Device leakage [Unknown]

NARRATIVE: CASE EVENT DATE: 20230301
